FAERS Safety Report 8928627 (Version 1)
Quarter: 2012Q4

REPORT INFORMATION
  Report Type: 
  Country: HU (occurrence: HU)
  Receive Date: 20121127
  Receipt Date: 20121127
  Transmission Date: 20130627
  Serious: Yes (Other)
  Sender: FDA-Public Use
  Company Number: HU-PFIZER INC-2012293892

PATIENT
  Age: 69 Year
  Sex: Female
  Weight: 59 kg

DRUGS (3)
  1. XALATAN [Suspect]
     Indication: GLAUCOMA
     Dosage: 2x1 drop/day
  2. INSULATARD [Concomitant]
     Dosage: UNK
  3. ACTRAPID [Concomitant]
     Dosage: UNK

REACTIONS (2)
  - Visual acuity reduced [Not Recovered/Not Resolved]
  - Overdose [Not Recovered/Not Resolved]
